FAERS Safety Report 7525176-9 (Version None)
Quarter: 2011Q2

REPORT INFORMATION
  Report Type: 
  Country: None (occurrence: None)
  Receive Date: 20110606
  Receipt Date: 20110530
  Transmission Date: 20111010
  Serious: Yes (Hospitalization)
  Sender: FDA-Public Use
  Company Number: US-SANOFI-AVENTIS-2011SA004251

PATIENT
  Age: 71 Year
  Sex: Female
  Weight: 57 kg

DRUGS (5)
  1. MULTAQ [Suspect]
     Indication: ATRIAL FIBRILLATION
     Route: 048
     Dates: start: 20101210, end: 20101220
  2. MULTAQ [Suspect]
     Route: 048
  3. DILTIAZEM [Concomitant]
     Indication: HEART RATE IRREGULAR
     Dates: start: 20100827, end: 20101217
  4. DIGOXIN [Concomitant]
     Indication: HEART RATE IRREGULAR
     Dates: start: 20100827, end: 20101210
  5. WARFARIN SODIUM [Concomitant]
     Indication: ANTICOAGULANT THERAPY
     Dates: start: 20100827

REACTIONS (7)
  - SWELLING [None]
  - ATRIAL FIBRILLATION [None]
  - DRUG INEFFECTIVE [None]
  - CHEST PAIN [None]
  - PRODUCTIVE COUGH [None]
  - CARDIAC FAILURE CONGESTIVE [None]
  - DYSPNOEA [None]
